FAERS Safety Report 6930184-2 (Version None)
Quarter: 2010Q3

REPORT INFORMATION
  Report Type: 
  Country: None (occurrence: None)
  Receive Date: 20100818
  Receipt Date: 20100809
  Transmission Date: 20110219
  Serious: Yes (Other)
  Sender: FDA-Public Use
  Company Number: US-PFIZER INC-2010100377

PATIENT
  Sex: Male

DRUGS (1)
  1. CLEOCIN [Suspect]
     Dosage: UNK

REACTIONS (2)
  - CLOSTRIDIAL INFECTION [None]
  - GASTROINTESTINAL DISORDER [None]
